FAERS Safety Report 14031469 (Version 2)
Quarter: 2017Q4

REPORT INFORMATION
  Report Type: Report from Study
  Country: None (occurrence: US)
  Receive Date: 20171003
  Receipt Date: 20171013
  Transmission Date: 20180321
  Serious: Yes (Hospitalization)
  Sender: FDA-Public Use
  Company Number: US-ABBVIE-17K-163-2067387-00

PATIENT
  Age: 54 Year
  Sex: Male

DRUGS (1)
  1. HUMIRA [Suspect]
     Active Substance: ADALIMUMAB
     Indication: RHEUMATOID ARTHRITIS
     Dosage: DAY ONE
     Route: 058
     Dates: start: 20170808, end: 20170808

REACTIONS (11)
  - Renal failure [Unknown]
  - Joint swelling [Unknown]
  - Nervousness [Unknown]
  - Productive cough [Unknown]
  - Sepsis [Unknown]
  - Upper respiratory tract infection [Not Recovered/Not Resolved]
  - Incorrect dose administered [Unknown]
  - Depression [Unknown]
  - Arthralgia [Unknown]
  - Joint stiffness [Unknown]
  - Pneumonia [Unknown]

NARRATIVE: CASE EVENT DATE: 2017
